FAERS Safety Report 10591862 (Version 1)
Quarter: 2014Q4

REPORT INFORMATION
  Report Type: Report from Study
  Country: NL (occurrence: NL)
  Receive Date: 20141119
  Receipt Date: 20141119
  Transmission Date: 20150529
  Serious: Yes (Hospitalization, Other)
  Sender: FDA-Public Use
  Company Number: NL-AMGEN-NLDSL2013094621

PATIENT
  Age: 66 Year
  Sex: Male

DRUGS (1)
  1. XGEVA [Suspect]
     Active Substance: DENOSUMAB
     Indication: PRODUCT USED FOR UNKNOWN INDICATION
     Dosage: 120 MG, Q4WK
     Route: 065
     Dates: start: 20130116, end: 20140612

REACTIONS (12)
  - Emotional disorder [Unknown]
  - Terminal state [Unknown]
  - Back pain [Unknown]
  - Hospitalisation [Unknown]
  - Spinal pain [Unknown]
  - General physical health deterioration [Unknown]
  - Arthropathy [Unknown]
  - Bone pain [Unknown]
  - Fatigue [Unknown]
  - Asthenia [Unknown]
  - Prostatic specific antigen increased [Unknown]
  - Blood test abnormal [Unknown]
